FAERS Safety Report 22539918 (Version 1)
Quarter: 2023Q2

REPORT INFORMATION
  Report Type: Report from Study
  Country: CO (occurrence: CO)
  Receive Date: 20230609
  Receipt Date: 20230609
  Transmission Date: 20230722
  Serious: Yes (Other)
  Sender: FDA-Public Use
  Company Number: CO-ABBVIE-5280698

PATIENT
  Age: 35 Year
  Sex: Female
  Weight: 70 kg

DRUGS (3)
  1. BOTOX [Suspect]
     Active Substance: ONABOTULINUMTOXINA
     Indication: Migraine
     Dosage: TIME INTERVAL: AS NECESSARY: FORM STRENGTH: 200 UNIT
     Route: 030
     Dates: start: 20210106, end: 20210106
  2. LYRICA [Concomitant]
     Active Substance: PREGABALIN
     Indication: Back pain
     Dosage: 2 CAPSULES AT NIGHT
     Route: 048
     Dates: start: 2020
  3. METHYLPREDNISOLONE [Concomitant]
     Active Substance: METHYLPREDNISOLONE
     Indication: Systemic lupus erythematosus
     Dosage: 2 TABLET
     Route: 048
     Dates: start: 2020

REACTIONS (7)
  - Uterine leiomyoma [Recovering/Resolving]
  - Therapeutic product effect variable [Unknown]
  - Biopsy uterus abnormal [Recovering/Resolving]
  - Menstruation irregular [Recovering/Resolving]
  - Uterine disorder [Recovering/Resolving]
  - Uterine disorder [Recovering/Resolving]
  - Headache [Unknown]

NARRATIVE: CASE EVENT DATE: 20220901
